FAERS Safety Report 5514839-2 (Version None)
Quarter: 2007Q4

REPORT INFORMATION
  Report Type: 
  Country: None (occurrence: None)
  Receive Date: 20071113
  Receipt Date: 20071103
  Transmission Date: 20080405
  Serious: Yes (Hospitalization)
  Sender: FDA-Public Use
  Company Number: US-ELI_LILLY_AND_COMPANY-US200711001609

PATIENT
  Sex: Female

DRUGS (6)
  1. BYETTA [Suspect]
     Dosage: UNK, UNKNOWN
     Route: 058
     Dates: start: 20060101
  2. BYETTA [Suspect]
     Dosage: 5 UG, EACH MORNING
     Route: 058
  3. BYETTA [Suspect]
     Dosage: 10 UG, EACH EVENING
     Route: 058
  4. METFORMIN HCL [Concomitant]
     Indication: DIABETES MELLITUS
     Dosage: 500 MG, 2/D
     Route: 048
  5. ZETIA [Concomitant]
     Route: 048
  6. GEMFIBROZIL [Concomitant]
     Route: 048

REACTIONS (5)
  - ABDOMINAL PAIN UPPER [None]
  - CEREBROVASCULAR ACCIDENT [None]
  - DIZZINESS [None]
  - NAUSEA [None]
  - URINARY TRACT INFECTION [None]
